FAERS Safety Report 15015014 (Version 1)
Quarter: 2018Q2

REPORT INFORMATION
  Report Type: Spontaneous
  Country: US (occurrence: US)
  Receive Date: 20180615
  Receipt Date: 20180615
  Transmission Date: 20180711
  Serious: Yes (Death, Other)
  Sender: FDA-Public Use
  Company Number: US-ALKEM LABORATORIES LIMITED-US-ALKEM-2018-04193

PATIENT
  Age: 65 Year
  Sex: Female

DRUGS (2)
  1. OLANZAPINE. [Suspect]
     Active Substance: OLANZAPINE
     Indication: ABNORMAL BEHAVIOUR
     Dosage: UNK (BEING TREATED ALTERNATELY WITH ORAL AND IM OLANZAPINE)
     Route: 048
  2. OLANZAPINE. [Suspect]
     Active Substance: OLANZAPINE
     Dosage: UNK (BEING TREATED ALTERNATELY WITH ORAL AND IM OLANZAPINE)
     Route: 030

REACTIONS (1)
  - Pulmonary embolism [Fatal]
